FAERS Safety Report 8991285 (Version 2)
Quarter: 2013Q1

REPORT INFORMATION
  Report Type: Report from Study
  Country: FR (occurrence: FR)
  Receive Date: 20121231
  Receipt Date: 20130211
  Transmission Date: 20140127
  Serious: Yes (Hospitalization)
  Sender: FDA-Public Use
  Company Number: FR-ROCHE-1167495

PATIENT
  Age: 68 Year
  Sex: Male

DRUGS (10)
  1. RITUXIMAB [Suspect]
     Indication: CHRONIC LYMPHOCYTIC LEUKAEMIA
     Route: 041
     Dates: start: 20101206
  2. RITUXIMAB [Suspect]
     Route: 041
     Dates: start: 20111219, end: 20111219
  3. CYCLOPHOSPHAMIDE [Suspect]
     Indication: CHRONIC LYMPHOCYTIC LEUKAEMIA
     Route: 065
     Dates: start: 20101206
  4. FLUDARABINE [Suspect]
     Indication: CHRONIC LYMPHOCYTIC LEUKAEMIA
     Route: 065
     Dates: start: 20101206
  5. BACTRIM FORTE [Concomitant]
     Route: 002
  6. SPECIAFOLDINE [Concomitant]
  7. TAREG [Concomitant]
  8. DILTIAZEM [Concomitant]
  9. CARDENSIEL [Concomitant]
  10. NASONEX [Concomitant]
     Dosage: FOR 1 MONTH
     Route: 065

REACTIONS (3)
  - Herpes zoster [Recovered/Resolved]
  - Pulmonary mass [Unknown]
  - Neutropenia [Recovered/Resolved]
